FAERS Safety Report 23547934 (Version 3)
Quarter: 2024Q3

REPORT INFORMATION
  Report Type: Report from Study
  Country: US (occurrence: US)
  Receive Date: 20240221
  Receipt Date: 20240808
  Transmission Date: 20241017
  Serious: Yes (Hospitalization, Other)
  Sender: NOVARTIS
  Company Number: US-002147023-NVSC2024US033379

PATIENT
  Sex: Female

DRUGS (2)
  1. KISQALI [Suspect]
     Active Substance: RIBOCICLIB
     Indication: Breast cancer
     Dosage: 3 DOSAGE FORM, QD
     Route: 048
     Dates: start: 20240204
  2. KISQALI [Suspect]
     Active Substance: RIBOCICLIB
     Dosage: 1 DOSAGE FORM, QD
     Route: 065
     Dates: start: 20240319

REACTIONS (14)
  - Blood calcium decreased [Unknown]
  - Thrombosis [Unknown]
  - Ejection fraction decreased [Unknown]
  - Cardiac disorder [Unknown]
  - Vein disorder [Unknown]
  - Fatigue [Unknown]
  - Nervousness [Unknown]
  - Micturition disorder [Unknown]
  - Pruritus [Unknown]
  - Peripheral swelling [Unknown]
  - Renal disorder [Unknown]
  - Amnesia [Unknown]
  - Gait disturbance [Unknown]
  - Infection [Unknown]
